FAERS Safety Report 25872178 (Version 2)
Quarter: 2025Q4

REPORT INFORMATION
  Report Type: Report from Study
  Country: US (occurrence: None)
  Receive Date: 20251002
  Receipt Date: 20251212
  Transmission Date: 20260118
  Serious: Yes (Other)
  Sender: UCB
  Company Number: US-UCBSA-2025042965

PATIENT
  Age: 31 Year
  Weight: 65.77 kg

DRUGS (8)
  1. BIMEKIZUMAB [Suspect]
     Active Substance: BIMEKIZUMAB
     Indication: Psoriasis
     Dosage: 320 MILLIGRAM, EV 8 WEEKS
  2. BIMEKIZUMAB [Suspect]
     Active Substance: BIMEKIZUMAB
     Dosage: 320 MILLIGRAM, EV 8 WEEKS
  3. LEVOTHYROXINE [Concomitant]
     Active Substance: LEVOTHYROXINE
     Indication: Thyroidectomy
     Dosage: 150 MILLIGRAM, ONCE DAILY (QD)
  4. LEVOTHYROXINE [Concomitant]
     Active Substance: LEVOTHYROXINE
     Indication: Papillary thyroid cancer
  5. ZOLOFT [Concomitant]
     Active Substance: SERTRALINE HYDROCHLORIDE
     Indication: Perinatal depression
     Dosage: 100 MILLIGRAM, ONCE DAILY (QD)
  6. CALCIUM CARBONATE [Concomitant]
     Active Substance: CALCIUM CARBONATE
     Indication: Electrolyte imbalance
     Dosage: 1000 MILLIGRAM, 3X/DAY (TID)
  7. PHOSPHORUS [Concomitant]
     Active Substance: PHOSPHORUS
     Indication: Electrolyte imbalance
     Dosage: 250 MILLIGRAM, 3X/DAY (TID)
  8. PERCOCET [Concomitant]
     Active Substance: ACETAMINOPHEN\OXYCODONE HYDROCHLORIDE
     Indication: Pain
     Dosage: 5 MILLIGRAM

REACTIONS (8)
  - Pneumonia [Recovering/Resolving]
  - Hysterectomy [Not Recovered/Not Resolved]
  - Kidney infection [Unknown]
  - Adenomyosis [Unknown]
  - Anxiety [Unknown]
  - Endometriosis [Unknown]
  - Urinary tract infection [Unknown]
  - Product dose omission issue [Unknown]
